FAERS Safety Report 25805330 (Version 2)
Quarter: 2025Q4

REPORT INFORMATION
  Report Type: Spontaneous
  Country: BR (occurrence: BR)
  Receive Date: 20250916
  Receipt Date: 20251107
  Transmission Date: 20260118
  Serious: Yes (Other)
  Sender: CHEPLAPHARM
  Company Number: BR-CHEPLA-2025010788

PATIENT
  Sex: Female
  Weight: 62 kg

DRUGS (4)
  1. CLONAZEPAM [Suspect]
     Active Substance: CLONAZEPAM
     Indication: Insomnia
     Dosage: DAILY DOSE: 20 DROP
     Route: 048
     Dates: start: 2007, end: 202505
  2. SERTRALINE [Concomitant]
     Active Substance: SERTRALINE HYDROCHLORIDE
     Indication: Insomnia
     Dosage: 1 TABLET DAILY?DAILY DOSE: 1 DOSAGE FORM
     Route: 048
     Dates: start: 2007
  3. ESCITALOPRAM [Concomitant]
     Active Substance: ESCITALOPRAM OXALATE
     Indication: Depression
     Dosage: 1 TABLET DAILY?DAILY DOSE: 1 DOSAGE FORM
     Route: 048
     Dates: start: 2007
  4. ESCITALOPRAM [Concomitant]
     Active Substance: ESCITALOPRAM OXALATE
     Indication: Anxiety
     Dosage: 1 TABLET DAILY?DAILY DOSE: 1 DOSAGE FORM
     Route: 048
     Dates: start: 2007

REACTIONS (6)
  - Anxiety [Not Recovered/Not Resolved]
  - Irritability [Not Recovered/Not Resolved]
  - Drug dependence [Not Recovered/Not Resolved]
  - Product availability issue [Not Recovered/Not Resolved]
  - Therapy interrupted [Not Recovered/Not Resolved]
  - Off label use [Recovered/Resolved]

NARRATIVE: CASE EVENT DATE: 20070101
